FAERS Safety Report 6931181-3 (Version None)
Quarter: 2010Q3

REPORT INFORMATION
  Report Type: 
  Country: None (occurrence: None)
  Receive Date: 20100818
  Receipt Date: 20100810
  Transmission Date: 20110219
  Serious: Yes (Other)
  Sender: FDA-Public Use
  Company Number: CI-GILEAD-2010-0031055

PATIENT
  Age: 39 Year
  Sex: Female
  Weight: 63 kg

DRUGS (37)
  1. TRUVADA [Suspect]
     Indication: HIV INFECTION
     Route: 048
     Dates: start: 20100202
  2. EFAVIRENZ [Suspect]
     Indication: HIV INFECTION
     Dates: start: 20100202, end: 20100727
  3. TRIMETHOPRIM [Suspect]
     Indication: OPPORTUNISTIC INFECTION PROPHYLAXIS
     Dates: start: 20080527
  4. SULFAMETHOXAZOLE [Suspect]
     Indication: OPPORTUNISTIC INFECTION PROPHYLAXIS
     Dates: start: 20080527
  5. PARACETAMOL W/DEXTROPROPOXYPHENE [Concomitant]
     Dates: start: 20100713
  6. FER SULFATE W/FOLIQUE AC [Concomitant]
     Dates: start: 20100713
  7. ALBENDAZOLE W/MEBENDAZOLE [Concomitant]
     Dates: start: 20100706
  8. SEL DE REHYDRATATION [Concomitant]
     Dates: start: 20100628
  9. MULTIVITAMINE [Concomitant]
     Dates: start: 20100628
  10. METOPIMAZINE [Concomitant]
     Dates: start: 20100628
  11. AMODIAQUINE W/ARTESUNATE [Concomitant]
     Dates: start: 20100624
  12. PARACETAMOL [Concomitant]
     Dates: start: 20100624
  13. DICLOFENAC [Concomitant]
     Dates: start: 20100624
  14. VITAMIN B COMPLEX CAP [Concomitant]
     Dates: start: 20100512
  15. CIPROFLOXACIN HCL [Concomitant]
     Dates: start: 20100427
  16. PHLOROGLUCINOL [Concomitant]
     Dates: start: 20100427
  17. NORGESTREL W/ESTRADIOL [Concomitant]
     Dates: start: 20100304
  18. CLOXACILLIN [Concomitant]
     Dates: start: 20100106
  19. TIEMONIUM W/ PHLOROGLUCINOL [Concomitant]
     Dates: start: 20091119
  20. ARTEMETHER W/LUMEFANTRINE [Concomitant]
     Dates: start: 20091116
  21. GRISEOFULVINE [Concomitant]
     Dates: start: 20091104
  22. CROTAMITON [Concomitant]
     Dates: start: 20091015
  23. CHLORPHENAMINE [Concomitant]
     Dates: start: 20091015
  24. MICONAZOLE [Concomitant]
     Dates: start: 20090925
  25. ECONAZOLE W/BUTOCONAZOLE [Concomitant]
     Dates: start: 20090818
  26. ECONAZOLE W/BUTOCONAZOLE [Concomitant]
  27. RANITIDINE [Concomitant]
     Dates: start: 20090615
  28. AZITHROMYCIN [Concomitant]
     Dates: start: 20090508
  29. BUFEXAMAC [Concomitant]
     Dates: start: 20090424
  30. IBUPROFEN [Concomitant]
     Dates: start: 20090212
  31. QUININE SULFATE [Concomitant]
     Dates: start: 20081107
  32. ACIDE ASCORBIQUE [Concomitant]
     Dates: start: 20081107
  33. DEXCHLORPHENIRAMINE MALEATE [Concomitant]
     Dates: start: 20081014
  34. CODEINE PHOSPHATE AND ACETAMINOPHEN [Concomitant]
     Dates: start: 20080827
  35. AMOXICILLINE W/CLAVULANIQUE [Concomitant]
     Dates: start: 20080723
  36. ARTESUNATE W/SULFAMETHOXYW/PYRIME [Concomitant]
     Dates: start: 20080627
  37. METRONIDAZOLE [Concomitant]

REACTIONS (1)
  - CYTOLYTIC HEPATITIS [None]
